FAERS Safety Report 15022217 (Version 1)
Quarter: 2018Q2

REPORT INFORMATION
  Report Type: Spontaneous
  Country: US (occurrence: US)
  Receive Date: 20180618
  Receipt Date: 20180618
  Transmission Date: 20180711
  Serious: No
  Sender: FDA-Public Use
  Company Number: US-SA-2018SA155647

PATIENT
  Sex: Male

DRUGS (8)
  1. PRALUENT [Suspect]
     Active Substance: ALIROCUMAB
     Indication: ACUTE MYOCARDIAL INFARCTION
     Dosage: 75 MG, QOW
     Route: 058
  2. METRONIDAZOLE. [Concomitant]
     Active Substance: METRONIDAZOLE
  3. METOPROLOL. [Concomitant]
     Active Substance: METOPROLOL
  4. SIMVASTATIN. [Concomitant]
     Active Substance: SIMVASTATIN
  5. ENALAPRIL [Concomitant]
     Active Substance: ENALAPRIL
  6. OMEPRAZOLE. [Concomitant]
     Active Substance: OMEPRAZOLE
  7. HYDROCODONE [Concomitant]
     Active Substance: HYDROCODONE
  8. CLINDAMYCIN. [Concomitant]
     Active Substance: CLINDAMYCIN

REACTIONS (1)
  - Pain [Not Recovered/Not Resolved]
